FAERS Safety Report 8286993-3 (Version None)
Quarter: 2012Q2

REPORT INFORMATION
  Report Type: 
  Country: None (occurrence: None)
  Receive Date: 20120416
  Receipt Date: 20120409
  Transmission Date: 20120825
  Serious: Yes (Other)
  Sender: FDA-Public Use
  Company Number: US-AMGEN-USASP2012022327

PATIENT
  Age: 63 Year
  Sex: Female

DRUGS (1)
  1. ENBREL [Suspect]
     Indication: MUSCULOSKELETAL PAIN
     Dosage: 50 MG, QWK
     Dates: start: 20100701

REACTIONS (3)
  - NASOPHARYNGITIS [None]
  - INFLUENZA [None]
  - SYSTEMIC LUPUS ERYTHEMATOSUS [None]
